FAERS Safety Report 16257313 (Version 2)
Quarter: 2019Q2

REPORT INFORMATION
  Report Type: Spontaneous
  Country: US (occurrence: US)
  Receive Date: 20190430
  Receipt Date: 20190501
  Transmission Date: 20190711
  Serious: Yes (Other)
  Sender: FDA-Public Use
  Company Number: US-SHIRE-US201913405

PATIENT
  Sex: Male

DRUGS (1)
  1. VYVANSE [Suspect]
     Active Substance: LISDEXAMFETAMINE DIMESYLATE
     Indication: ATTENTION DEFICIT/HYPERACTIVITY DISORDER
     Route: 065

REACTIONS (11)
  - Hormone level abnormal [Unknown]
  - Vomiting [Unknown]
  - Tinnitus [Unknown]
  - Incoherent [Unknown]
  - Aggression [Unknown]
  - Pain [Unknown]
  - Loss of consciousness [Unknown]
  - Seizure [Unknown]
  - Moaning [Unknown]
  - Head discomfort [Unknown]
  - Headache [Unknown]
